FAERS Safety Report 7389098-9 (Version None)
Quarter: 2011Q1

REPORT INFORMATION
  Report Type: 
  Country: None (occurrence: None)
  Receive Date: 20110329
  Receipt Date: 20110329
  Transmission Date: 20110831
  Serious: Yes (Death)
  Sender: FDA-Public Use
  Company Number: None

PATIENT
  Sex: Male
  Weight: 72.5755 kg

DRUGS (1)
  1. TEMAZEPAM [Suspect]
     Indication: DEPRESSION
     Dosage: 30MG 1X DAY MOUTH
     Route: 048
     Dates: start: 20081103

REACTIONS (1)
  - COMPLETED SUICIDE [None]
